FAERS Safety Report 8212280-5 (Version None)
Quarter: 2012Q1

REPORT INFORMATION
  Report Type: 
  Country: None (occurrence: None)
  Receive Date: 20120315
  Receipt Date: 20120312
  Transmission Date: 20120608
  Serious: Yes (Death, Hospitalization, Other)
  Sender: FDA-Public Use
  Company Number: US-BAYER-201041680NA

PATIENT
  Age: 58 Year
  Sex: Male
  Weight: 91 kg

DRUGS (27)
  1. HEPARIN [Concomitant]
     Dosage: 42000 U, UNK
     Route: 042
     Dates: start: 20070731
  2. TRASYLOL [Suspect]
     Indication: HEART TRANSPLANT
     Dosage: 200 ML LOAD FOLLOWED BY INFUSION OF 50 CC/HR
     Route: 042
     Dates: start: 20071101, end: 20071101
  3. AVANDIA [Concomitant]
     Dosage: UNK UNK, QD
     Route: 048
  4. RED BLOOD CELLS [Concomitant]
     Dosage: 16 U, UNK
     Route: 042
     Dates: start: 20071031, end: 20071101
  5. TRASYLOL [Suspect]
     Indication: TRICUSPID VALVE REPAIR
     Dosage: UNK
     Route: 042
     Dates: start: 20070803
  6. AMICAR [Concomitant]
     Dosage: 10 G, UNK
     Route: 042
     Dates: start: 20071101
  7. CRESTOR [Concomitant]
     Dosage: UNK UNK, QD
     Route: 048
  8. AVAPRO [Concomitant]
     Dosage: UNK UNK, QD
     Route: 048
  9. DIGOXIN [Concomitant]
     Dosage: UNK UNK, QD
     Route: 048
  10. AMICAR [Concomitant]
     Dosage: 10 GRAMS
     Route: 042
     Dates: start: 20071101
  11. NIASPAN [Concomitant]
     Dosage: UNK UNK, QD
     Route: 048
  12. ALBUTEROL [Concomitant]
     Dosage: UNK UNK, QD
     Route: 048
  13. PLASMA [Concomitant]
     Dosage: 6 U, UNK
     Dates: start: 20071031, end: 20071101
  14. PLATELETS [Concomitant]
     Dosage: 30 U, UNK
     Route: 042
     Dates: start: 20071031, end: 20071101
  15. TRASYLOL [Suspect]
     Indication: VENTRICULAR ASSIST DEVICE INSERTION
  16. IMDUR [Concomitant]
     Dosage: UNK UNK, QD
     Route: 048
  17. LANTUS [Concomitant]
     Dosage: UNK UNK, QD
     Route: 058
  18. PLAVIX [Concomitant]
     Dosage: UNK UNK, QD
     Route: 048
  19. SPIRONOLACTONE [Concomitant]
     Dosage: UNK UNK, QD
     Route: 048
  20. ZETIA [Concomitant]
     Route: 048
  21. METHYLPREDNISOLONE [Concomitant]
     Dosage: 500 MG, TWICE
     Dates: start: 20070731
  22. PROTAMINE SULFATE [Concomitant]
     Dosage: UNK
     Dates: start: 20070731
  23. COREG [Concomitant]
     Dosage: UNK UNK, QD
     Route: 048
  24. HUMALOG [Concomitant]
     Dosage: UNK UNK, QD
     Route: 058
  25. FUROSEMIDE [Concomitant]
     Dosage: UNK UNK, QD
     Route: 048
  26. PLASMA [Concomitant]
     Dosage: 12 U, UNK
     Route: 042
     Dates: start: 20071031, end: 20071101
  27. CRYOPRECIPITATES [Concomitant]
     Dosage: 10 U, UNK
     Route: 042
     Dates: start: 20071031, end: 20071101

REACTIONS (11)
  - RENAL INJURY [None]
  - EMOTIONAL DISTRESS [None]
  - RENAL IMPAIRMENT [None]
  - FEAR [None]
  - UNEVALUABLE EVENT [None]
  - RENAL FAILURE [None]
  - ANXIETY [None]
  - DEATH [None]
  - STRESS [None]
  - MULTI-ORGAN FAILURE [None]
  - PAIN [None]
